FAERS Safety Report 12548137 (Version 2)
Quarter: 2016Q3

REPORT INFORMATION
  Report Type: Spontaneous
  Country: US (occurrence: US)
  Receive Date: 20160712
  Receipt Date: 20160728
  Transmission Date: 20161109
  Serious: No
  Sender: FDA-Public Use
  Company Number: US-BAYER-2016-128922

PATIENT
  Age: 92 Year
  Sex: Female
  Weight: 50.34 kg

DRUGS (2)
  1. ALEVE [Suspect]
     Active Substance: NAPROXEN SODIUM
     Indication: PAIN
  2. ALEVE [Suspect]
     Active Substance: NAPROXEN SODIUM
     Indication: RENAL DISORDER
     Dosage: 1 DF, Q8HR
     Route: 048
     Dates: start: 201603, end: 201606

REACTIONS (3)
  - Unevaluable event [Recovered/Resolved]
  - Hyperhidrosis [Recovered/Resolved]
  - Product use issue [None]

NARRATIVE: CASE EVENT DATE: 201603
